FAERS Safety Report 7163965-3 (Version None)
Quarter: 2010Q4

REPORT INFORMATION
  Report Type: 
  Country: None (occurrence: None)
  Receive Date: 20101215
  Receipt Date: 20101201
  Transmission Date: 20110411
  Serious: Yes (Hospitalization, Congenital Anomaly)
  Sender: FDA-Public Use
  Company Number: A0681494A

PATIENT
  Sex: Female
  Weight: 3.1 kg

DRUGS (5)
  1. PAXIL [Suspect]
     Indication: ANXIETY
     Dosage: 20MG PER DAY
     Dates: start: 19971201
  2. PRENATAL VITAMINS [Concomitant]
  3. TYLENOL (CAPLET) [Concomitant]
  4. SUDAFED 12 HOUR [Concomitant]
  5. ROBITUSSIN [Concomitant]
     Dates: start: 19980204

REACTIONS (4)
  - ATRIAL SEPTAL DEFECT [None]
  - DRUG EXPOSURE DURING PREGNANCY [None]
  - PATENT DUCTUS ARTERIOSUS [None]
  - VENTRICULAR SEPTAL DEFECT [None]
